FAERS Safety Report 4987413-4 (Version None)
Quarter: 2006Q2

REPORT INFORMATION
  Report Type: 
  Country: None (occurrence: None)
  Receive Date: 20060501
  Receipt Date: 20060113
  Transmission Date: 20061013
  Serious: Yes (Hospitalization, Disabling)
  Sender: FDA-Public Use
  Company Number: US-MERCK-0601USA01659

PATIENT
  Age: 54 Year
  Sex: Male
  Weight: 73 kg

DRUGS (1)
  1. VIOXX [Suspect]
     Indication: RHEUMATOID ARTHRITIS
     Route: 048
     Dates: start: 20021101, end: 20040901

REACTIONS (12)
  - APHTHOUS STOMATITIS [None]
  - ARRHYTHMIA SUPRAVENTRICULAR [None]
  - ATRIOVENTRICULAR BLOCK SECOND DEGREE [None]
  - COMPLEX REGIONAL PAIN SYNDROME [None]
  - CORONARY ARTERY DISEASE [None]
  - DEPRESSION [None]
  - FOOT AMPUTATION [None]
  - GANGRENE [None]
  - LIMB INJURY [None]
  - MYOCARDIAL INFARCTION [None]
  - THROMBOSIS [None]
  - VENTRICULAR ARRHYTHMIA [None]
